FAERS Safety Report 7450487-5 (Version None)
Quarter: 2011Q2

REPORT INFORMATION
  Report Type: 
  Country: None (occurrence: None)
  Receive Date: 20110502
  Receipt Date: 20110420
  Transmission Date: 20111010
  Serious: Yes (Other)
  Sender: FDA-Public Use
  Company Number: PHHY2011US34631

PATIENT
  Sex: Female

DRUGS (7)
  1. HYZAAR [Suspect]
  2. NORVASC [Suspect]
  3. DIOVAN HCT [Suspect]
     Dosage: 80 MG OF VALS AND 12.5 MG OF HCT, TWICE DAILY
     Route: 048
  4. KLONOPIN [Suspect]
  5. DIOVAN HCT [Suspect]
     Dosage: EVENING DOSE AS PER NEEDED
  6. COZAAR [Suspect]
  7. TOPROL-XL [Concomitant]
     Dosage: 50 MG, BID

REACTIONS (13)
  - RENAL CANCER [None]
  - CARDIAC DISORDER [None]
  - WRONG TECHNIQUE IN DRUG USAGE PROCESS [None]
  - HEADACHE [None]
  - RENAL FAILURE [None]
  - UTERINE ENLARGEMENT [None]
  - FIBROSARCOMA [None]
  - RENAL HAEMORRHAGE [None]
  - NEOPLASM MALIGNANT [None]
  - DEVICE DISLOCATION [None]
  - BLOOD PRESSURE INADEQUATELY CONTROLLED [None]
  - DIZZINESS [None]
  - CHRONIC OBSTRUCTIVE PULMONARY DISEASE [None]
